FAERS Safety Report 4516328-0 (Version None)
Quarter: 2004Q4

REPORT INFORMATION
  Report Type: 
  Country: None (occurrence: None)
  Receive Date: 20041202
  Receipt Date: 20040511
  Transmission Date: 20050328
  Serious: No
  Sender: FDA-Public Use
  Company Number: US-GLAXOSMITHKLINE-A0511393A

PATIENT
  Age: 18 Year
  Sex: Female
  Weight: 80 kg

DRUGS (2)
  1. AMOXICILLIN AND CLAVULANATE POTASSIUM [Suspect]
     Indication: ILL-DEFINED DISORDER
     Route: 048
     Dates: start: 20040506
  2. DIPROSPAN [Concomitant]

REACTIONS (1)
  - SOMNOLENCE [None]
